FAERS Safety Report 4869918-X (Version None)
Quarter: 2005Q4

REPORT INFORMATION
  Report Type: 
  Country: None (occurrence: None)
  Receive Date: 20051230
  Receipt Date: 20051004
  Transmission Date: 20060501
  Serious: Yes (Hospitalization)
  Sender: FDA-Public Use
  Company Number: US-MERCK-0510USA03708

PATIENT
  Age: 58 Year
  Sex: Female
  Weight: 70 kg

DRUGS (10)
  1. VIOXX [Suspect]
     Indication: ARTHRALGIA
     Route: 048
     Dates: start: 20020401, end: 20040401
  2. ACIPHEX [Concomitant]
     Indication: OESOPHAGITIS
     Route: 065
     Dates: start: 20020801
  3. BELLAMINE S [Concomitant]
     Indication: MENOPAUSE
     Route: 065
     Dates: start: 20000701
  4. DETROL [Concomitant]
     Indication: INCONTINENCE
     Route: 065
     Dates: start: 20001001
  5. EVISTA [Concomitant]
     Indication: OSTEOPOROSIS
     Route: 065
     Dates: start: 20001101
  6. HYDROCHLOROTHIAZIDE [Concomitant]
     Indication: HYPERTENSION
     Route: 065
     Dates: start: 20020812, end: 20020901
  7. MIACALCIN [Concomitant]
     Indication: HYPERSENSITIVITY
     Route: 065
     Dates: start: 19970801
  8. NORVASC [Concomitant]
     Indication: HYPERTENSION
     Route: 065
     Dates: start: 20021015, end: 20030101
  9. OPTIVAR OPHTHALMIC SOLUTION [Concomitant]
     Indication: HYPERSENSITIVITY
     Route: 065
     Dates: start: 20020901
  10. NEXIUM [Concomitant]
     Indication: OESOPHAGITIS
     Route: 065
     Dates: start: 20020301

REACTIONS (6)
  - BLOOD CHOLESTEROL INCREASED [None]
  - EYE INFECTION [None]
  - MYOCARDIAL INFARCTION [None]
  - NASAL CONGESTION [None]
  - PYREXIA [None]
  - SINUSITIS [None]
